FAERS Safety Report 16210088 (Version 2)
Quarter: 2019Q3

REPORT INFORMATION
  Report Type: Spontaneous
  Country: JP (occurrence: JP)
  Receive Date: 20190417
  Receipt Date: 20190810
  Transmission Date: 20191004
  Serious: Yes (Other)
  Sender: FDA-Public Use
  Company Number: JP-LUNDBECK-DKLU2055991

PATIENT
  Age: 5 Month
  Sex: Male
  Weight: 6 kg

DRUGS (5)
  1. SABRIL [Suspect]
     Active Substance: VIGABATRIN
     Indication: EARLY INFANTILE EPILEPTIC ENCEPHALOPATHY WITH BURST-SUPPRESSION
     Dosage: 530 MG/DAY, BID
     Route: 048
     Dates: start: 20181013, end: 20181017
  2. CLOBAZAM. [Concomitant]
     Active Substance: CLOBAZAM
     Indication: EARLY INFANTILE EPILEPTIC ENCEPHALOPATHY WITH BURST-SUPPRESSION
     Route: 065
     Dates: start: 20180723
  3. SABRIL [Suspect]
     Active Substance: VIGABATRIN
     Dosage: 265 MG/DAY, BID
     Route: 048
     Dates: start: 20181006, end: 20181012
  4. ZONISAMIDE. [Concomitant]
     Active Substance: ZONISAMIDE
     Indication: EARLY INFANTILE EPILEPTIC ENCEPHALOPATHY WITH BURST-SUPPRESSION
     Route: 065
     Dates: start: 20180723
  5. LEVETIRACETAM. [Concomitant]
     Active Substance: LEVETIRACETAM
     Indication: EARLY INFANTILE EPILEPTIC ENCEPHALOPATHY WITH BURST-SUPPRESSION
     Route: 065
     Dates: start: 20180723

REACTIONS (2)
  - Respiratory depression [Recovering/Resolving]
  - Toxic encephalopathy [Recovered/Resolved]

NARRATIVE: CASE EVENT DATE: 20181015
